FAERS Safety Report 9862058 (Version 4)
Quarter: 2014Q2

REPORT INFORMATION
  Report Type: Spontaneous
  Country: US (occurrence: US)
  Receive Date: 20140203
  Receipt Date: 20140605
  Transmission Date: 20141212
  Serious: No
  Sender: FDA-Public Use
  Company Number: US-PFIZER INC-2014028890

PATIENT
  Sex: Female

DRUGS (3)
  1. PREMARIN [Suspect]
     Indication: OESTROGEN REPLACEMENT THERAPY
     Dosage: 0.625 MG, UNK
     Route: 048
     Dates: end: 201312
  2. PREMARIN [Suspect]
     Indication: HOT FLUSH
     Dosage: 0.3 MG, UNK
     Route: 048
  3. PREMARIN [Suspect]
     Dosage: 0.625 MG, UNK
     Route: 048
     Dates: start: 20131228

REACTIONS (1)
  - Drug ineffective [Unknown]
